FAERS Safety Report 5229262-8 (Version None)
Quarter: 2007Q1

REPORT INFORMATION
  Report Type: 
  Country: None (occurrence: None)
  Receive Date: 20061201
  Receipt Date: 20060807
  Transmission Date: 20070707
  Serious: No
  Sender: FDA-Public Use
  Company Number: US200608001546

PATIENT
  Age: 31 Year
  Sex: Female

DRUGS (3)
  1. CYMBALTA [Suspect]
     Indication: DEPRESSION
     Dosage: 60 MG
     Dates: start: 20060101
  2. YASMIN /SWE/ (DROSPERIDONE, ETHINYLESTRADIOL) [Concomitant]
  3. FLUOXETINE [Concomitant]

REACTIONS (5)
  - ABNORMAL DREAMS [None]
  - DIZZINESS [None]
  - DRUG WITHDRAWAL SYNDROME [None]
  - NAUSEA [None]
  - NIGHT SWEATS [None]
